FAERS Safety Report 4410471-2 (Version None)
Quarter: 2004Q3

REPORT INFORMATION
  Report Type: 
  Country: None (occurrence: None)
  Receive Date: 20040729
  Receipt Date: 20040722
  Transmission Date: 20050211
  Serious: Yes (Death, Life-Threatening)
  Sender: FDA-Public Use
  Company Number: FR-BRISTOL-MYERS SQUIBB COMPANY-12648531

PATIENT
  Age: 70 Year
  Sex: Male

DRUGS (3)
  1. TAXOL [Suspect]
     Route: 042
  2. PARAPLATIN [Concomitant]
     Dosage: AUC 2
  3. RADIOTHERAPY [Concomitant]
     Dosage: 66 GY

REACTIONS (2)
  - PULMONARY FIBROSIS [None]
  - RESPIRATORY FAILURE [None]
